FAERS Safety Report 8247525-9 (Version None)
Quarter: 2012Q1

REPORT INFORMATION
  Report Type: 
  Country: None (occurrence: None)
  Receive Date: 20120330
  Receipt Date: 20120315
  Transmission Date: 20120608
  Serious: Yes (Life-Threatening, Hospitalization, Other)
  Sender: FDA-Public Use
  Company Number: NL-CELGENEUS-114-21880-12011106

PATIENT
  Sex: Male

DRUGS (3)
  1. REVLIMID [Suspect]
     Dosage: 15 MILLIGRAM
     Route: 048
     Dates: start: 20110207, end: 20111201
  2. VIDAZA [Suspect]
     Route: 050
     Dates: end: 20110531
  3. ANTIBIOTICS [Concomitant]
     Indication: PROPHYLAXIS
     Route: 065

REACTIONS (4)
  - PANCYTOPENIA [None]
  - ENDOCARDITIS [None]
  - STAPHYLOCOCCAL SEPSIS [None]
  - DISEASE PROGRESSION [None]
